FAERS Safety Report 7228562-X (Version None)
Quarter: 2011Q1

REPORT INFORMATION
  Report Type: 
  Country: None (occurrence: None)
  Receive Date: 20110117
  Receipt Date: 20110107
  Transmission Date: 20110831
  Serious: Yes (Hospitalization, Other)
  Sender: FDA-Public Use
  Company Number: US-BIOGENIDEC-2011BI001015

PATIENT
  Sex: Male

DRUGS (2)
  1. AVONEX [Suspect]
     Indication: MULTIPLE SCLEROSIS
     Route: 030
     Dates: start: 20101119
  2. AVONEX [Suspect]
     Route: 030
     Dates: start: 20080207, end: 20090730

REACTIONS (2)
  - DIALYSIS [None]
  - CATHETER SITE INFECTION [None]
